FAERS Safety Report 6117419-3 (Version None)
Quarter: 2009Q1

REPORT INFORMATION
  Report Type: 
  Country: None (occurrence: None)
  Receive Date: 20090314
  Receipt Date: 20090119
  Transmission Date: 20090719
  Serious: No
  Sender: FDA-Public Use
  Company Number: US-ABBOTT-09P-163-0498644-00

PATIENT
  Sex: Female
  Weight: 63.56 kg

DRUGS (2)
  1. HUMIRA [Suspect]
     Indication: RHEUMATOID ARTHRITIS
     Dates: start: 20071201, end: 20081225
  2. HUMIRA [Suspect]
     Dates: start: 20090117

REACTIONS (3)
  - HOT FLUSH [None]
  - HYPERHIDROSIS [None]
  - NASOPHARYNGITIS [None]
